FAERS Safety Report 7309748-2 (Version None)
Quarter: 2011Q1

REPORT INFORMATION
  Report Type: 
  Country: None (occurrence: None)
  Receive Date: 20110224
  Receipt Date: 20110214
  Transmission Date: 20110831
  Serious: Yes (Hospitalization)
  Sender: FDA-Public Use
  Company Number: US-BIOGENIDEC-2011BI003152

PATIENT
  Age: 25 Year
  Sex: Female

DRUGS (4)
  1. VITAMIN D [Concomitant]
  2. AMBIEN [Concomitant]
  3. TYSABRI [Suspect]
     Indication: MULTIPLE SCLEROSIS
     Route: 042
     Dates: start: 20110124, end: 20110124
  4. SINGULAIR [Concomitant]

REACTIONS (2)
  - ANAPHYLACTIC REACTION [None]
  - PAIN IN EXTREMITY [None]
